FAERS Safety Report 13416679 (Version 1)
Quarter: 2017Q2

REPORT INFORMATION
  Report Type: Spontaneous
  Country: US (occurrence: US)
  Receive Date: 20170406
  Receipt Date: 20170406
  Transmission Date: 20170830
  Serious: Yes (Other)
  Sender: FDA-Public Use
  Company Number: US-TEVA-754810USA

PATIENT
  Sex: Male

DRUGS (2)
  1. FENTANYL. [Suspect]
     Active Substance: FENTANYL
     Indication: PAIN
  2. FENTANYL. [Suspect]
     Active Substance: FENTANYL
     Indication: OSTEOPOROSIS
     Route: 062

REACTIONS (5)
  - Application site pruritus [Unknown]
  - Fracture [Unknown]
  - Drug effect decreased [Unknown]
  - Application site erythema [Unknown]
  - Constipation [Unknown]
